FAERS Safety Report 8572481-3 (Version None)
Quarter: 2012Q3

REPORT INFORMATION
  Report Type: 
  Country: None (occurrence: None)
  Receive Date: 20120806
  Receipt Date: 20120725
  Transmission Date: 20120928
  Serious: Yes (Other)
  Sender: FDA-Public Use
  Company Number: JP-ROCHE-1090948

PATIENT
  Sex: Male
  Weight: 70 kg

DRUGS (20)
  1. LEVOLEUCOVORIN CALCIUM [Concomitant]
     Indication: COLON CANCER RECURRENT
     Dosage: DOSAGE IS UNCERTAIN.
     Route: 041
     Dates: start: 20091124, end: 20100301
  2. OXYCODONE HCL [Concomitant]
     Route: 048
     Dates: start: 20110101, end: 20110101
  3. LEVOLEUCOVORIN CALCIUM [Concomitant]
     Dosage: DOSAGE IS UNCERTAIN.
     Route: 041
     Dates: start: 20111031, end: 20120213
  4. XELODA [Suspect]
     Indication: COLON CANCER RECURRENT
     Route: 048
     Dates: start: 20100713, end: 20100101
  5. OXALIPLATIN [Concomitant]
     Indication: COLON CANCER RECURRENT
     Dosage: DOSAGE IS UNCERTAIN.
     Route: 041
     Dates: start: 20091124, end: 20100301
  6. LOXOPROFEN [Concomitant]
     Dosage: 60MG-120MG/DAY
     Route: 048
     Dates: start: 20110101, end: 20110101
  7. OXALIPLATIN [Concomitant]
     Dosage: DOSAGE IS UNCERTAIN.
     Route: 041
     Dates: start: 20101122, end: 20110822
  8. IRINOTECAN HCL [Concomitant]
     Indication: COLON CANCER RECURRENT
     Dosage: DOSAGE IS UNCERTAIN.
     Route: 041
     Dates: start: 20111031, end: 20120213
  9. AVASTIN [Suspect]
     Indication: COLON CANCER RECURRENT
     Dosage: DOSAGE IS UNCERTAIN.
     Route: 041
     Dates: start: 20091124, end: 20100301
  10. FLUOROURACIL [Concomitant]
     Dosage: DOSAGE IS UNCERTAIN.
     Route: 041
     Dates: start: 20091124, end: 20100301
  11. FLUOROURACIL [Concomitant]
     Dosage: DOSAGE IS UNCERTAIN.
     Route: 040
     Dates: start: 20111031, end: 20120213
  12. FLUOROURACIL [Concomitant]
     Dosage: DOSAGE IS UNCERTAIN.
     Route: 041
     Dates: start: 20111031, end: 20120201
  13. LOXOPROFEN [Concomitant]
     Indication: PAIN
     Route: 048
     Dates: start: 20100101, end: 20110101
  14. AVASTIN [Suspect]
     Route: 041
     Dates: start: 20101122, end: 20110822
  15. FLUOROURACIL [Concomitant]
     Indication: COLON CANCER RECURRENT
     Dosage: DOSAGE IS UNCERTAIN.
     Route: 040
     Dates: start: 20091124, end: 20100301
  16. LOXOPROFEN [Concomitant]
     Dosage: 180MG/5-6HR
     Route: 048
     Dates: start: 20110101, end: 20110101
  17. AVASTIN [Suspect]
     Route: 041
     Dates: start: 20111031, end: 20111212
  18. TS-1 [Concomitant]
     Indication: COLON CANCER RECURRENT
     Dosage: DOSAGE IS UNCERTAIN.
     Route: 048
     Dates: start: 20110822, end: 20110930
  19. XELODA [Suspect]
     Route: 048
     Dates: start: 20100927, end: 20110822
  20. OXYCODONE HCL [Concomitant]
     Indication: PAIN
     Route: 048
     Dates: start: 20110101, end: 20110101

REACTIONS (3)
  - EXTRAVASATION OF URINE [None]
  - URETERIC OBSTRUCTION [None]
  - PALMAR-PLANTAR ERYTHRODYSAESTHESIA SYNDROME [None]
